FAERS Safety Report 12988195 (Version 2)
Quarter: 2016Q4

REPORT INFORMATION
  Report Type: Spontaneous
  Country: US (occurrence: US)
  Receive Date: 20161130
  Receipt Date: 20161206
  Transmission Date: 20170207
  Serious: Yes (Hospitalization)
  Sender: FDA-Public Use
  Company Number: US-CELGENEUS-USA-2016117151

PATIENT
  Age: 70 Year
  Sex: Male

DRUGS (2)
  1. REVLIMID [Suspect]
     Active Substance: LENALIDOMIDE
     Indication: PLASMA CELL MYELOMA
     Dosage: 15 MG
     Route: 048
     Dates: start: 20160913
  2. REVLIMID [Suspect]
     Active Substance: LENALIDOMIDE
     Dosage: 15 MG
     Route: 048
     Dates: start: 2016

REACTIONS (2)
  - Anaphylactic reaction [Recovered/Resolved with Sequelae]
  - Rash [Recovered/Resolved]

NARRATIVE: CASE EVENT DATE: 2016
